FAERS Safety Report 24256991 (Version 1)
Quarter: 2024Q3

REPORT INFORMATION
  Report Type: Spontaneous
  Country: FR (occurrence: FR)
  Receive Date: 20240828
  Receipt Date: 20240828
  Transmission Date: 20241016
  Serious: Yes (Death, Hospitalization, Other)
  Sender: GLAXOSMITHKLINE
  Company Number: None

PATIENT

DRUGS (2)
  1. SUMATRIPTAN SUCCINATE [Suspect]
     Active Substance: SUMATRIPTAN SUCCINATE
     Indication: Cluster headache
     Dosage: 1 DF, SINGLE
     Route: 051
     Dates: start: 20240721, end: 20240721
  2. XYLOCAINE [Suspect]
     Active Substance: LIDOCAINE HYDROCHLORIDE\LIDOCAINE HYDROCHLORIDE ANHYDROUS
     Indication: Pain
     Dosage: 1 DF, SINGLE
     Route: 051
     Dates: start: 20240721, end: 20240721

REACTIONS (5)
  - Cardio-respiratory arrest [Fatal]
  - Seizure [Recovering/Resolving]
  - Somnolence [Not Recovered/Not Resolved]
  - Bradypnoea [Not Recovered/Not Resolved]
  - Confusional state [Not Recovered/Not Resolved]

NARRATIVE: CASE EVENT DATE: 20240721
